FAERS Safety Report 11837622 (Version 1)
Quarter: 2015Q4

REPORT INFORMATION
  Report Type: Not Available
  Country: US (occurrence: US)
  Receive Date: 20151215
  Receipt Date: 20151215
  Transmission Date: 20160305
  Serious: No
  Sender: FDA-Public Use
  Company Number: US-ANIPHARMA-2015-US-000778

PATIENT
  Age: 61 Year
  Sex: Female
  Weight: 113.85 kg

DRUGS (1)
  1. NICARDIPINE HYDROCHLORIDE (NON-SPECIFIC) [Suspect]
     Active Substance: NICARDIPINE HYDROCHLORIDE
     Dosage: 60MG TID, 50MG QD
     Route: 048

REACTIONS (1)
  - Hypotension [Recovered/Resolved]
